FAERS Safety Report 9958591 (Version 1)
Quarter: 2014Q1

REPORT INFORMATION
  Report Type: Spontaneous
  Country: US (occurrence: None)
  Receive Date: 20140124
  Receipt Date: 20140124
  Transmission Date: 20141002
  Serious: Yes (Hospitalization)
  Sender: FDA-Public Use
  Company Number: 2012AP000129

PATIENT
  Age: 58 Year
  Sex: Male

DRUGS (5)
  1. MIRTAZAPINE TABLETS [Suspect]
     Indication: SCHIZOAFFECTIVE DISORDER
  2. DIVALPROEX SODIUM [Concomitant]
  3. OLANZAPINE [Concomitant]
  4. CLONAZEPAM [Concomitant]
  5. RISPERIDONE [Concomitant]

REACTIONS (4)
  - Pancytopenia [None]
  - Cough [None]
  - Pyrexia [None]
  - Influenza like illness [None]
